FAERS Safety Report 20132793 (Version 3)
Quarter: 2021Q4

REPORT INFORMATION
  Report Type: Report from Study
  Country: DE (occurrence: DE)
  Receive Date: 20211130
  Receipt Date: 20211215
  Transmission Date: 20220303
  Serious: Yes (Death, Hospitalization, Other)
  Sender: FDA-Public Use
  Company Number: DE-002147023-NVSC2021DE230308

PATIENT
  Sex: Female

DRUGS (7)
  1. LETROZOLE [Suspect]
     Active Substance: LETROZOLE
     Indication: Hormone receptor positive HER2 negative breast cancer
     Dosage: 2.5 MG, QD(SCHEME 21 DAYS INTAKE, 7 DAYS PAUSE)
     Route: 048
     Dates: start: 20200824
  2. KISQALI [Suspect]
     Active Substance: RIBOCICLIB
     Indication: Hormone receptor positive HER2 negative breast cancer
     Dosage: 600 MG, QD(SCHEME 21 DAYS INTAKE, 7 DAYS)
     Route: 048
     Dates: start: 20201020, end: 20201116
  3. KISQALI [Suspect]
     Active Substance: RIBOCICLIB
     Dosage: 400 MG, QD (SCHEME 21 DAYS INTAKE, 7 DAYS)
     Route: 048
     Dates: start: 20201229, end: 20210221
  4. KISQALI [Suspect]
     Active Substance: RIBOCICLIB
     Dosage: 200 MG, QD(SCHEME 21 DAYS INTAKE, 7 DAYS)
     Route: 048
     Dates: start: 20210511, end: 20210919
  5. KISQALI [Suspect]
     Active Substance: RIBOCICLIB
     Dosage: 600 MG, QD(SCHEME 21 DAYS INTAKE, 7 DAYS)
     Route: 048
     Dates: start: 20201124, end: 20201221
  6. KISQALI [Suspect]
     Active Substance: RIBOCICLIB
     Dosage: 200 MG, QD(SCHEME 21 DAYS INTAKE, 7 DAYS)
     Route: 048
     Dates: start: 20210330, end: 20210426
  7. KISQALI [Suspect]
     Active Substance: RIBOCICLIB
     Dosage: 400 MILLIGRAM, QD (QD (SCHEME 21 DAYS INTAKE, 7 DAYS))
     Route: 048
     Dates: start: 20201229, end: 20210222

REACTIONS (4)
  - Cholestasis [Fatal]
  - Dyspnoea [Fatal]
  - Malignant neoplasm progression [Fatal]
  - Breast cancer metastatic [Fatal]

NARRATIVE: CASE EVENT DATE: 20211004
